FAERS Safety Report 7490421-5 (Version None)
Quarter: 2011Q2

REPORT INFORMATION
  Report Type: 
  Country: None (occurrence: None)
  Receive Date: 20110519
  Receipt Date: 20110107
  Transmission Date: 20111010
  Serious: Yes (Other)
  Sender: FDA-Public Use
  Company Number: US-BAYER-201032626NA

PATIENT
  Age: 30 Year
  Sex: Female
  Weight: 58.957 kg

DRUGS (6)
  1. YAZ [Suspect]
     Indication: CONTRACEPTION
     Dosage: UNK UNK, QD
     Route: 048
     Dates: start: 20060201, end: 20080501
  2. ANTI-ASTHMATICS [Concomitant]
     Indication: ASTHMA
  3. VITAMIN C [Concomitant]
  4. NSAID'S [Concomitant]
     Dosage: NOS
  5. YASMIN [Suspect]
     Dosage: UNK
  6. YASMIN [Suspect]
     Indication: CONTRACEPTION
     Dosage: UNK UNK, QD
     Route: 048
     Dates: start: 20060201, end: 20080615

REACTIONS (8)
  - BACK PAIN [None]
  - GALLBLADDER DISORDER [None]
  - RENAL DISORDER [None]
  - ABDOMINAL PAIN UPPER [None]
  - ABDOMINAL PAIN [None]
  - CHOLELITHIASIS [None]
  - CHOLECYSTITIS CHRONIC [None]
  - URINARY TRACT INFECTION [None]
